FAERS Safety Report 16873416 (Version 1)
Quarter: 2019Q4

REPORT INFORMATION
  Report Type: Spontaneous
  Country: US (occurrence: US)
  Receive Date: 20191001
  Receipt Date: 20191001
  Transmission Date: 20200122
  Serious: No
  Sender: FDA-Public Use
  Company Number: US-PFIZER INC-2018284132

PATIENT
  Age: 55 Year
  Sex: Female

DRUGS (1)
  1. IBRANCE [Suspect]
     Active Substance: PALBOCICLIB
     Indication: BREAST CANCER FEMALE
     Dosage: 125 MG, CYCLIC [DAILY FOR 21 CONSECUTIVE DAYS EVERY 28 DAYS] ( TAKE ONE CAPSULE BY MOUTH)/ WITH FOOD
     Route: 048
     Dates: start: 201710

REACTIONS (2)
  - Product dose omission [Unknown]
  - Fatigue [Unknown]
